FAERS Safety Report 14058155 (Version 1)
Quarter: 2017Q4

REPORT INFORMATION
  Report Type: Report from Study
  Country: US (occurrence: US)
  Receive Date: 20171006
  Receipt Date: 20171006
  Transmission Date: 20180321
  Serious: Yes (Hospitalization)
  Sender: FDA-Public Use
  Company Number: US-ACTELION-A-NJ2017-160453

PATIENT
  Age: 89 Year
  Sex: Female

DRUGS (13)
  1. POTASSIUM CHLORIDE. [Concomitant]
     Active Substance: POTASSIUM CHLORIDE
  2. PAXIL [Concomitant]
     Active Substance: PAROXETINE HYDROCHLORIDE
  3. MULTIVITAMIN [Concomitant]
     Active Substance: VITAMINS
  4. TRACLEER [Suspect]
     Active Substance: BOSENTAN
     Indication: PULMONARY ARTERIAL HYPERTENSION
     Dosage: 125 MG, BID
     Route: 048
     Dates: start: 20120605
  5. AMLODIPINE [Concomitant]
     Active Substance: AMLODIPINE BESYLATE
  6. NEUROTIN [Concomitant]
     Active Substance: GABAPENTIN
  7. LEVETIRACETAM. [Concomitant]
     Active Substance: LEVETIRACETAM
  8. DIGOXIN. [Concomitant]
     Active Substance: DIGOXIN
  9. COUMADIN [Concomitant]
     Active Substance: WARFARIN SODIUM
  10. TORSEMIDE. [Concomitant]
     Active Substance: TORSEMIDE
  11. NORVASC [Concomitant]
     Active Substance: AMLODIPINE BESYLATE
  12. OSCAL [Concomitant]
     Active Substance: CALCIUM CARBONATE
  13. XANAX [Concomitant]
     Active Substance: ALPRAZOLAM

REACTIONS (2)
  - Heart valve operation [Unknown]
  - Pneumonia [Unknown]
